FAERS Safety Report 24663896 (Version 2)
Quarter: 2024Q4

REPORT INFORMATION
  Report Type: Spontaneous
  Country: US (occurrence: US)
  Receive Date: 20241126
  Receipt Date: 20241126
  Transmission Date: 20250114
  Serious: No
  Sender: NOVARTIS
  Company Number: US-002147023-NVSC2024US226151

PATIENT
  Sex: Female

DRUGS (1)
  1. LEQVIO [Suspect]
     Active Substance: INCLISIRAN SODIUM
     Indication: Hyperlipidaemia
     Dosage: UNK UNK, OTHER (EVERY 6 MONTHS FOLLOWING INITIAL DOSE AND THEN SECOND DOSE AT 3 MONTHS)
     Route: 058

REACTIONS (1)
  - Low density lipoprotein abnormal [Not Recovered/Not Resolved]
